FAERS Safety Report 5889304-3 (Version None)
Quarter: 2008Q3

REPORT INFORMATION
  Report Type: 
  Country: None (occurrence: None)
  Receive Date: 20080917
  Receipt Date: 20080530
  Transmission Date: 20090109
  Serious: No
  Sender: FDA-Public Use
  Company Number: 200813674

PATIENT
  Age: 54 Year
  Sex: Female
  Weight: 85.2762 kg

DRUGS (6)
  1. PRIVIGEN [Suspect]
     Indication: GUILLAIN-BARRE SYNDROME
     Dosage: 0.5 G/KG B.W. QD IV
     Route: 042
     Dates: start: 20080428, end: 20080501
  2. MULTI-VITAMINS [Concomitant]
  3. LOVAZA [Concomitant]
  4. CALCIUM [Concomitant]
  5. AMBIEN [Concomitant]
  6. RITALIN [Concomitant]

REACTIONS (13)
  - ASTHENIA [None]
  - BILIRUBIN CONJUGATED INCREASED [None]
  - BLOOD LACTATE DEHYDROGENASE INCREASED [None]
  - CHROMATURIA [None]
  - DYSPNOEA [None]
  - FATIGUE [None]
  - FULL BLOOD COUNT DECREASED [None]
  - HAEMOLYTIC ANAEMIA [None]
  - LIVEDO RETICULARIS [None]
  - LUMBAR SPINAL STENOSIS [None]
  - SOMNOLENCE [None]
  - TACHYCARDIA [None]
  - TYPE IV HYPERSENSITIVITY REACTION [None]
